FAERS Safety Report 12758005 (Version 1)
Quarter: 2016Q3

REPORT INFORMATION
  Report Type: Report from Study
  Country: US (occurrence: US)
  Receive Date: 20160919
  Receipt Date: 20160919
  Transmission Date: 20161109
  Serious: Yes (Hospitalization, Other)
  Sender: FDA-Public Use
  Company Number: US-BAYER-2016-152217

PATIENT
  Age: 65 Year
  Sex: Male

DRUGS (2)
  1. NEXAVAR [Suspect]
     Active Substance: SORAFENIB
     Indication: HEPATOCELLULAR CARCINOMA
     Dosage: 200 MG, BID
     Route: 048
     Dates: start: 20160729, end: 2016
  2. NEXAVAR [Suspect]
     Active Substance: SORAFENIB
     Indication: HEPATOCELLULAR CARCINOMA
     Dosage: 400 MG, BID
     Route: 048
     Dates: start: 20160805, end: 2016

REACTIONS (12)
  - Constipation [Not Recovered/Not Resolved]
  - Peripheral swelling [None]
  - Oedema peripheral [Recovered/Resolved]
  - Diarrhoea [None]
  - Blood pressure fluctuation [None]
  - Blister [None]
  - Blood pressure increased [None]
  - Pruritus [None]
  - Orthostatic hypertension [None]
  - Pyrexia [Not Recovered/Not Resolved]
  - Abdominal pain [None]
  - Chest pain [None]

NARRATIVE: CASE EVENT DATE: 201607
